FAERS Safety Report 5827841-8 (Version None)
Quarter: 2008Q3

REPORT INFORMATION
  Report Type: 
  Country: None (occurrence: None)
  Receive Date: 20080728
  Receipt Date: 20080714
  Transmission Date: 20090109
  Serious: Yes (Hospitalization)
  Sender: FDA-Public Use
  Company Number: 1-16405809/MED-08135

PATIENT
  Sex: Female

DRUGS (1)
  1. KETOCONAZOLE [Suspect]
     Indication: GENITAL DISCHARGE
     Dosage: 200 MG, ONCE, ORAL
     Route: 048

REACTIONS (4)
  - ANAPHYLACTIC SHOCK [None]
  - HEPATITIS ACUTE [None]
  - LIVER INJURY [None]
  - PROTHROMBIN TIME PROLONGED [None]
